FAERS Safety Report 18747952 (Version 2)
Quarter: 2021Q3

REPORT INFORMATION
  Report Type: Spontaneous
  Country: IT (occurrence: IT)
  Receive Date: 20210115
  Receipt Date: 20210812
  Transmission Date: 20211014
  Serious: Yes (Hospitalization)
  Sender: FDA-Public Use
  Company Number: IT-MYLANLABS-2021M1001815

PATIENT
  Age: 69 Year
  Sex: Female

DRUGS (8)
  1. DULOXETINE HYDROCHLORIDE. [Suspect]
     Active Substance: DULOXETINE HYDROCHLORIDE
     Dosage: 150 MILLIGRAM, TOTAL
     Route: 048
     Dates: start: 20190327, end: 20190327
  2. CITALOPRAM [Suspect]
     Active Substance: CITALOPRAM HYDROBROMIDE
     Indication: DEPRESSION
     Dosage: 100 MILLIGRAM, TOTAL
     Route: 048
     Dates: start: 20190127, end: 20190127
  3. QUETIAPINE. [Suspect]
     Active Substance: QUETIAPINE
     Indication: DEPRESSION
     Dosage: 625 MILLIGRAM, TOTAL
     Route: 048
     Dates: start: 20190127, end: 20190127
  4. DULOXETINE HYDROCHLORIDE. [Suspect]
     Active Substance: DULOXETINE HYDROCHLORIDE
     Indication: DEPRESSION
     Dosage: 150 MILLIGRAM, TOTAL
     Route: 048
     Dates: start: 20190127, end: 20190127
  5. CITALOPRAM [Suspect]
     Active Substance: CITALOPRAM HYDROBROMIDE
     Dosage: 100 MILLIGRAM, TOTAL
     Route: 048
     Dates: start: 20190327, end: 20190327
  6. QUETIAPINE. [Suspect]
     Active Substance: QUETIAPINE
     Dosage: 625 MILLIGRAM, TOTAL
     Route: 048
     Dates: start: 20190327, end: 20190327
  7. CARBOLITHIUM [Suspect]
     Active Substance: LITHIUM CARBONATE
     Indication: DEPRESSION
     Dosage: 5 DOSAGE FORM, TOTAL
     Route: 048
     Dates: start: 20190127, end: 20190127
  8. CARBOLITHIUM [Suspect]
     Active Substance: LITHIUM CARBONATE
     Dosage: 5 DOSAGE FORM, TOTAL
     Route: 048
     Dates: start: 20190327, end: 20190327

REACTIONS (3)
  - Sopor [Recovering/Resolving]
  - Drug abuse [Recovering/Resolving]
  - Bradycardia [Recovering/Resolving]

NARRATIVE: CASE EVENT DATE: 20190327
